FAERS Safety Report 12304677 (Version 1)
Quarter: 2016Q2

REPORT INFORMATION
  Report Type: Spontaneous
  Country: US (occurrence: None)
  Receive Date: 20160425
  Receipt Date: 20160425
  Transmission Date: 20160815
  Serious: Yes (Hospitalization, Disabling)
  Sender: FDA-Public Use
  Company Number: None

PATIENT
  Age: 61 Year
  Sex: Male
  Weight: 90.72 kg

DRUGS (5)
  1. LEXAPRO [Suspect]
     Active Substance: ESCITALOPRAM OXALATE
     Indication: SLEEP DISORDER
     Dosage: 1 PILL 1 TIME DAILY MOUTH
     Route: 048
     Dates: start: 2013, end: 2015
  2. OXYCODONE [Concomitant]
     Active Substance: OXYCODONE
  3. METFORMIN [Concomitant]
     Active Substance: METFORMIN HYDROCHLORIDE
  4. LEXAPRO [Suspect]
     Active Substance: ESCITALOPRAM OXALATE
     Indication: STRESS
     Dosage: 1 PILL 1 TIME DAILY MOUTH
     Route: 048
     Dates: start: 2013, end: 2015
  5. PREVICID [Concomitant]

REACTIONS (10)
  - Tinnitus [None]
  - Nausea [None]
  - Amnesia [None]
  - Erectile dysfunction [None]
  - Dyspnoea [None]
  - Vision blurred [None]
  - Myalgia [None]
  - Weight decreased [None]
  - Arthralgia [None]
  - Malaise [None]

NARRATIVE: CASE EVENT DATE: 2013
